FAERS Safety Report 5504052-7 (Version None)
Quarter: 2007Q4

REPORT INFORMATION
  Report Type: 
  Country: None (occurrence: None)
  Receive Date: 20071030
  Receipt Date: 20071015
  Transmission Date: 20080405
  Serious: Yes (Hospitalization)
  Sender: FDA-Public Use
  Company Number: DSU-2007-00749

PATIENT
  Sex: Female

DRUGS (1)
  1. EVOXAC [Suspect]
     Indication: DRY MOUTH
     Dosage: PER ORAL
     Route: 048
     Dates: start: 20070918

REACTIONS (3)
  - DEHYDRATION [None]
  - MALAISE [None]
  - PAROTITIS [None]
